FAERS Safety Report 5103221-8 (Version None)
Quarter: 2006Q3

REPORT INFORMATION
  Report Type: 
  Country: None (occurrence: None)
  Receive Date: 20060911
  Receipt Date: 20060911
  Transmission Date: 20061208
  Serious: Yes (Life-Threatening)
  Sender: FDA-Public Use
  Company Number: None

PATIENT
  Age: 30 Year
  Sex: Female

DRUGS (1)
  1. TOPAMAX [Suspect]
     Indication: DEPRESSION
     Dosage: 125 MG BID PO
     Route: 048
     Dates: start: 20060306, end: 20060625

REACTIONS (1)
  - HOMICIDAL IDEATION [None]
